FAERS Safety Report 10201919 (Version 1)
Quarter: 2014Q2

REPORT INFORMATION
  Report Type: Spontaneous
  Country: GB (occurrence: GB)
  Receive Date: 20140528
  Receipt Date: 20140528
  Transmission Date: 20141212
  Serious: Yes (Other)
  Sender: FDA-Public Use
  Company Number: GB-VERTEX PHARMACEUTICALS INC-2014-002478

PATIENT
  Age: 47 Year
  Sex: Female

DRUGS (1)
  1. INCIVO [Suspect]
     Indication: HEPATITIS C
     Route: 065
     Dates: start: 201401, end: 201403

REACTIONS (2)
  - Swelling face [Recovered/Resolved]
  - Urticaria [Recovered/Resolved]
